FAERS Safety Report 9425079 (Version 1)
Quarter: 2013Q3

REPORT INFORMATION
  Report Type: Report from Study
  Country: CA (occurrence: CA)
  Receive Date: 20130729
  Receipt Date: 20130729
  Transmission Date: 20140515
  Serious: Yes (Other)
  Sender: FDA-Public Use
  Company Number: CA-JNJFOC-20130715054

PATIENT
  Age: 51 Year
  Sex: Female
  Weight: 90.72 kg

DRUGS (2)
  1. REMICADE [Suspect]
     Indication: CROHN^S DISEASE
     Dosage: DOSAGE: WEEK 0-2-6
     Route: 042
     Dates: start: 20120202
  2. REMICADE [Suspect]
     Indication: CROHN^S DISEASE
     Route: 042
     Dates: end: 20130409

REACTIONS (1)
  - Lupus-like syndrome [Unknown]
